FAERS Safety Report 19732175 (Version 1)
Quarter: 2021Q3

REPORT INFORMATION
  Report Type: Spontaneous
  Country: US (occurrence: US)
  Receive Date: 20210820
  Receipt Date: 20210820
  Transmission Date: 20211014
  Serious: No
  Sender: FDA-Public Use
  Company Number: US-BIOMARINAP-US-2021-138121

PATIENT
  Sex: Female

DRUGS (1)
  1. VIMIZIM [Suspect]
     Active Substance: ELOSULFASE ALFA
     Indication: MUCOPOLYSACCHARIDOSIS IV
     Dosage: 40 MILLIGRAM, QW
     Route: 042
     Dates: start: 20150302

REACTIONS (5)
  - Cough [Unknown]
  - COVID-19 [Unknown]
  - Nasopharyngitis [Unknown]
  - Anosmia [Unknown]
  - Ageusia [Unknown]
